FAERS Safety Report 18594126 (Version 1)
Quarter: 2020Q4

REPORT INFORMATION
  Report Type: Spontaneous
  Country: US (occurrence: US)
  Receive Date: 20201209
  Receipt Date: 20201209
  Transmission Date: 20210114
  Serious: Yes (Hospitalization, Other)
  Sender: FDA-Public Use
  Company Number: US-B.I. PHARMACEUTICALS,INC./RIDGEFIELD-2020-BI-066153

PATIENT
  Age: 67 Year
  Sex: Male

DRUGS (3)
  1. SYNJARDY XR [Suspect]
     Active Substance: EMPAGLIFLOZIN\METFORMIN HYDROCHLORIDE
     Indication: TYPE 2 DIABETES MELLITUS
     Dosage: 5MG/1000MG ONE IN THE MORNING AND ONE AT NIGHT
     Route: 065
     Dates: start: 2018, end: 2020
  2. TAMSULOSIN [Concomitant]
     Active Substance: TAMSULOSIN
     Indication: PRODUCT USED FOR UNKNOWN INDICATION
     Route: 065
  3. SYNJARDY XR [Suspect]
     Active Substance: EMPAGLIFLOZIN\METFORMIN HYDROCHLORIDE
     Dosage: 10MG/1000MG ONE IN THE MORNING AND ONE AT NIGHT
     Route: 065
     Dates: start: 20201130

REACTIONS (9)
  - Incorrect dose administered [Unknown]
  - Off label use [Unknown]
  - Diffuse large B-cell lymphoma [Not Recovered/Not Resolved]
  - Biliary obstruction [Not Recovered/Not Resolved]
  - Haematuria [Recovered/Resolved]
  - Hepatic enzyme increased [Recovering/Resolving]
  - Hepatomegaly [Recovering/Resolving]
  - Abdominal pain [Recovered/Resolved]
  - Abdominal lymphadenopathy [Recovering/Resolving]

NARRATIVE: CASE EVENT DATE: 2018
